FAERS Safety Report 21245989 (Version 1)
Quarter: 2022Q3

REPORT INFORMATION
  Report Type: Report from Study
  Country: US (occurrence: US)
  Receive Date: 20220824
  Receipt Date: 20220824
  Transmission Date: 20221027
  Serious: Yes (Other)
  Sender: FDA-Public Use
  Company Number: US-BRISTOL-MYERS SQUIBB COMPANY-2022-087815

PATIENT
  Age: 54 Year
  Sex: Female
  Weight: 51.26 kg

DRUGS (4)
  1. REVLIMID [Suspect]
     Active Substance: LENALIDOMIDE
     Indication: Plasma cell myeloma
     Route: 048
     Dates: start: 20200118
  2. REVLIMID [Suspect]
     Active Substance: LENALIDOMIDE
     Route: 065
     Dates: start: 20220728
  3. REVLIMID [Suspect]
     Active Substance: LENALIDOMIDE
     Route: 065
     Dates: start: 20220729
  4. REVLIMID [Suspect]
     Active Substance: LENALIDOMIDE
     Route: 065

REACTIONS (11)
  - Rash [Unknown]
  - Inflammation [Unknown]
  - Erythema [Unknown]
  - Contusion [Unknown]
  - Rash pruritic [Unknown]
  - Haemorrhage [Unknown]
  - Blister [Unknown]
  - Petechiae [Unknown]
  - Swelling [Unknown]
  - Urticaria [Unknown]
  - Head discomfort [Unknown]

NARRATIVE: CASE EVENT DATE: 20220730
